FAERS Safety Report 5983048-5 (Version None)
Quarter: 2008Q4

REPORT INFORMATION
  Report Type: 
  Country: None (occurrence: None)
  Receive Date: 20081208
  Receipt Date: 20080304
  Transmission Date: 20090506
  Serious: No
  Sender: FDA-Public Use
  Company Number: US-AMGEN-KDL268108

PATIENT
  Sex: Female

DRUGS (2)
  1. ENBREL [Suspect]
     Indication: RHEUMATOID ARTHRITIS
     Route: 058
     Dates: start: 20030227
  2. LEFLUNOMIDE [Concomitant]
     Route: 048
     Dates: start: 20070101

REACTIONS (5)
  - COUGH [None]
  - PAIN [None]
  - RASH PRURITIC [None]
  - RHEUMATOID ARTHRITIS [None]
  - SINUS CONGESTION [None]
